FAERS Safety Report 8500318-7 (Version None)
Quarter: 2012Q3

REPORT INFORMATION
  Report Type: 
  Country: None (occurrence: None)
  Receive Date: 20120705
  Receipt Date: 20120705
  Transmission Date: 20120928
  Serious: Yes (Hospitalization)
  Sender: FDA-Public Use
  Company Number: None

PATIENT
  Sex: Male
  Weight: 87.0906 kg

DRUGS (9)
  1. FUROSEMIDE [Concomitant]
  2. LACTULOSE [Concomitant]
  3. ACETAMINOPHEN [Concomitant]
  4. DOCUSATE [Concomitant]
  5. NEOSPORIN [Concomitant]
  6. SENNA-MINT WAF [Concomitant]
  7. ONDANSETRON [Concomitant]
  8. PROCHLORPERRAZINE [Concomitant]
  9. REVLIMID [Suspect]
     Indication: CHRONIC LYMPHOCYTIC LEUKAEMIA
     Dosage: 10 MG ONCE DAILY PO
     Route: 048
     Dates: start: 20120606, end: 20120620

REACTIONS (8)
  - PYREXIA [None]
  - DYSPNOEA [None]
  - BRONCHOPULMONARY ASPERGILLOSIS [None]
  - CHILLS [None]
  - CELLULITIS [None]
  - DISEASE RECURRENCE [None]
  - ABDOMINAL WALL DISORDER [None]
  - INDURATION [None]
